FAERS Safety Report 15721094 (Version 1)
Quarter: 2018Q4

REPORT INFORMATION
  Report Type: Spontaneous
  Country: GB (occurrence: GB)
  Receive Date: 20181214
  Receipt Date: 20181214
  Transmission Date: 20190205
  Serious: Yes (Other)
  Sender: FDA-Public Use
  Company Number: GB-TEVA-2018-GB-985936

PATIENT
  Age: 44 Year
  Sex: Male
  Weight: 70 kg

DRUGS (6)
  1. LEVETIRACETAM. [Concomitant]
     Active Substance: LEVETIRACETAM
  2. PHENYTOIN. [Suspect]
     Active Substance: PHENYTOIN
     Indication: EPILEPSY
     Dosage: 150 MILLIGRAM DAILY; ROUTE: ORAL/IV
     Route: 050
     Dates: end: 20080305
  3. PHENYTOIN. [Suspect]
     Active Substance: PHENYTOIN
     Dosage: 1 GRAM DAILY; ROUTE: ORAL/IV
     Route: 050
     Dates: start: 20080302
  4. PARACETAMOL [Concomitant]
     Active Substance: ACETAMINOPHEN
  5. RANITIDINE. [Concomitant]
     Active Substance: RANITIDINE
  6. ENOXAPARIN [Concomitant]
     Active Substance: ENOXAPARIN

REACTIONS (1)
  - Rhabdomyolysis [Not Recovered/Not Resolved]

NARRATIVE: CASE EVENT DATE: 20080304
